FAERS Safety Report 7755029-2 (Version None)
Quarter: 2011Q3

REPORT INFORMATION
  Report Type: 
  Country: None (occurrence: None)
  Receive Date: 20110916
  Receipt Date: 20110908
  Transmission Date: 20111222
  Serious: Yes (Hospitalization)
  Sender: FDA-Public Use
  Company Number: DE-BRISTOL-MYERS SQUIBB COMPANY-15503840

PATIENT
  Age: 47 Year
  Sex: Male
  Weight: 141 kg

DRUGS (7)
  1. ACETYLSALICYLIC ACID SRT [Concomitant]
     Dosage: ASA 100
     Route: 048
  2. FLUOROURACIL [Suspect]
     Indication: COLORECTAL CANCER METASTATIC
     Dosage: 09FEB10-UNK,800MG UNK-11JAN11,4800MG
     Route: 042
     Dates: start: 20100209, end: 20110111
  3. IRINOTECAN HCL [Suspect]
     Indication: COLORECTAL CANCER METASTATIC
     Route: 042
     Dates: start: 20100209, end: 20110111
  4. LOPEDIUM [Concomitant]
     Dates: start: 20101129
  5. CETUXIMAB [Suspect]
     Indication: COLORECTAL CANCER METASTATIC
     Route: 042
     Dates: start: 20100209, end: 20110118
  6. LEUCOVORIN CALCIUM [Suspect]
     Indication: COLORECTAL CANCER METASTATIC
     Route: 042
     Dates: start: 20100209, end: 20110111
  7. TETRACYCLINE [Concomitant]

REACTIONS (2)
  - INTESTINAL HAEMORRHAGE [None]
  - HAEMOGLOBIN DECREASED [None]
